FAERS Safety Report 6262667-5 (Version None)
Quarter: 2009Q3

REPORT INFORMATION
  Report Type: 
  Country: None (occurrence: None)
  Receive Date: 20090709
  Receipt Date: 20090703
  Transmission Date: 20100115
  Serious: Yes (Hospitalization)
  Sender: FDA-Public Use
  Company Number: SG-WYE-H09727109

PATIENT
  Sex: Male
  Weight: 61.4 kg

DRUGS (6)
  1. SORAFENIB [Suspect]
     Indication: METASTATIC RENAL CELL CARCINOMA
     Route: 048
     Dates: start: 20090410, end: 20090611
  2. CHLORHEXIDINE GLUCONATE [Concomitant]
     Indication: DRY MOUTH
     Dosage: 0.2% GARGLE FREQUENCY NOT PROVIDED
     Route: 048
     Dates: start: 20090610
  3. OMEPRAZOLE [Concomitant]
     Indication: GASTROINTESTINAL ULCER
     Dosage: UNSPECIFIED
     Route: 048
     Dates: start: 20080905
  4. OMEPRAZOLE [Concomitant]
     Indication: PROPHYLAXIS
  5. ENALAPRIL MALEATE [Concomitant]
     Indication: HYPERTENSION
     Dosage: NOT PROVIDED
     Route: 048
     Dates: start: 20080905
  6. ACETYLSALICYLIC ACID SRT [Concomitant]
     Indication: MYOCARDIAL ISCHAEMIA
     Dosage: NOT PROVIDED
     Route: 048
     Dates: start: 20080905

REACTIONS (4)
  - CHEST WALL ABSCESS [None]
  - EMPYEMA [None]
  - PYREXIA [None]
  - SALMONELLOSIS [None]
